FAERS Safety Report 13899597 (Version 1)
Quarter: 2017Q3

REPORT INFORMATION
  Report Type: Spontaneous
  Country: US (occurrence: US)
  Receive Date: 20170823
  Receipt Date: 20170823
  Transmission Date: 20171127
  Serious: Yes (Other)
  Sender: FDA-Public Use
  Company Number: None

PATIENT
  Sex: Female
  Weight: 58.05 kg

DRUGS (14)
  1. PROLIA [Suspect]
     Active Substance: DENOSUMAB
     Indication: OSTEOPOROSIS
     Dosage: OTHER FREQUENCY:INJ EVERY 6 MONTH;?
     Route: 030
  2. PANTOPRAZOLE [Concomitant]
     Active Substance: PANTOPRAZOLE
  3. FLEXERIL [Concomitant]
     Active Substance: CYCLOBENZAPRINE HYDROCHLORIDE
  4. FISH OIL [Concomitant]
     Active Substance: FISH OIL
  5. MULTI VIT [Concomitant]
  6. CALCIUM [Concomitant]
     Active Substance: CALCIUM
  7. EXALGO [Concomitant]
     Active Substance: HYDROMORPHONE HYDROCHLORIDE
  8. SINGULAIR [Concomitant]
     Active Substance: MONTELUKAST SODIUM
  9. VITAMIN B12 [Concomitant]
     Active Substance: CYANOCOBALAMIN
  10. FLONASE [Concomitant]
     Active Substance: FLUTICASONE PROPIONATE
  11. GABAPENTIN. [Concomitant]
     Active Substance: GABAPENTIN
  12. VITAMIN E [Concomitant]
     Active Substance: .ALPHA.-TOCOPHEROL
  13. ATENOLOL. [Concomitant]
     Active Substance: ATENOLOL
  14. VIT D 3 [Concomitant]

REACTIONS (7)
  - Pain [None]
  - Swelling face [None]
  - Mouth swelling [None]
  - Hypoaesthesia [None]
  - Infection [None]
  - Osteomyelitis [None]
  - Candida infection [None]

NARRATIVE: CASE EVENT DATE: 20170327
